FAERS Safety Report 11733245 (Version 1)
Quarter: 2015Q4

REPORT INFORMATION
  Report Type: Report from Study
  Country: PL (occurrence: PL)
  Receive Date: 20151113
  Receipt Date: 20151113
  Transmission Date: 20160304
  Serious: Yes (Hospitalization)
  Sender: FDA-Public Use
  Company Number: PL-ROCHE-704737

PATIENT
  Age: 61 Year
  Sex: Female

DRUGS (15)
  1. CYCLOPHOSPHAMIDE. [Suspect]
     Active Substance: CYCLOPHOSPHAMIDE
     Dosage: 4 CYCLES -2 MONTHS
     Route: 042
     Dates: end: 20100428
  2. ALLOPURINOL. [Concomitant]
     Active Substance: ALLOPURINOL
     Route: 065
  3. ONDANSETRON [Concomitant]
     Active Substance: ONDANSETRON
  4. RITUXIMAB [Suspect]
     Active Substance: RITUXIMAB
     Indication: WALDENSTROM^S MACROGLOBULINAEMIA
     Dosage: DOSE; 345 MG/M2; GIVEN ON DAY 1; RECEIVED 02 CYCLES
     Route: 042
     Dates: start: 20100223, end: 20100316
  5. VINCRISTINE [Suspect]
     Active Substance: VINCRISTINE
     Route: 042
     Dates: end: 20100428
  6. DOXORUBICIN [Suspect]
     Active Substance: DOXORUBICIN
     Dosage: 4 CYCLES-2 MONTHS
     Route: 042
     Dates: end: 20100428
  7. PREDNISONE. [Suspect]
     Active Substance: PREDNISONE
     Dosage: GIVEN 1-5 DAY 4 CYCLE-2 MONTHS
     Route: 048
     Dates: end: 20100428
  8. FILGRASTIM [Concomitant]
     Active Substance: FILGRASTIM
     Route: 065
     Dates: start: 20100429, end: 20100503
  9. RITUXIMAB [Suspect]
     Active Substance: RITUXIMAB
     Dosage: DOSE; 375 MG/M2; GIVEN ON DAY 1; RECEIVED 04 CYCLES 2 MONTHS
     Route: 042
  10. VINCRISTINE [Suspect]
     Active Substance: VINCRISTINE
     Indication: WALDENSTROM^S MACROGLOBULINAEMIA
     Dosage: GIVEN ON DAY 1; RECEIVED 02 CYCLES
     Route: 042
     Dates: start: 20100223, end: 20100316
  11. DOXORUBICIN [Suspect]
     Active Substance: DOXORUBICIN
     Indication: WALDENSTROM^S MACROGLOBULINAEMIA
     Dosage: DOSE: 50 MG/M2; GIVEN ON DAY 1; RECEIVED 02 CYCLES
     Route: 042
     Dates: start: 20100223, end: 20100316
  12. OMEPRAZOLE. [Concomitant]
     Active Substance: OMEPRAZOLE
  13. CYCLOPHOSPHAMIDE. [Suspect]
     Active Substance: CYCLOPHOSPHAMIDE
     Indication: WALDENSTROM^S MACROGLOBULINAEMIA
     Dosage: DOSE: 750 MG/M2; GIVEN ON DAY 1; RECEIVED 02 CYCLES
     Route: 042
     Dates: start: 20100223, end: 20100316
  14. PREDNISONE. [Suspect]
     Active Substance: PREDNISONE
     Indication: WALDENSTROM^S MACROGLOBULINAEMIA
     Dosage: DOSE: 40 MG/M2; GIVEN FROM DAY 1 TO 5; RECEIVED 2 CYCLE
     Route: 048
     Dates: start: 20100223, end: 20100316
  15. FURAGINUM [Concomitant]
     Route: 065
     Dates: start: 20100429, end: 20100501

REACTIONS (1)
  - Spinal fracture [Recovered/Resolved]

NARRATIVE: CASE EVENT DATE: 20100514
